FAERS Safety Report 22350573 (Version 1)
Quarter: 2023Q2

REPORT INFORMATION
  Report Type: Spontaneous
  Country: US (occurrence: None)
  Receive Date: 20230521
  Receipt Date: 20230521
  Transmission Date: 20230721
  Serious: No
  Sender: FDA-Public Use
  Company Number: None

PATIENT
  Age: 31 Year
  Sex: Female
  Weight: 56.7 kg

DRUGS (1)
  1. ADDERALL XR [Suspect]
     Active Substance: AMPHETAMINE ASPARTATE\AMPHETAMINE SULFATE\DEXTROAMPHETAMINE SACCHARATE\DEXTROAMPHETAMINE SULFATE
     Indication: Attention deficit hyperactivity disorder
     Dosage: OTHER QUANTITY : 60 CAPSULE(S);?
     Route: 048

REACTIONS (9)
  - Therapeutic product effect decreased [None]
  - Sleep disorder [None]
  - Fatigue [None]
  - Brain fog [None]
  - Restlessness [None]
  - Asthenia [None]
  - Somnolence [None]
  - Loss of personal independence in daily activities [None]
  - Impaired work ability [None]

NARRATIVE: CASE EVENT DATE: 20230321
